FAERS Safety Report 13911635 (Version 1)
Quarter: 2017Q3

REPORT INFORMATION
  Report Type: Spontaneous
  Country: US (occurrence: US)
  Receive Date: 20170828
  Receipt Date: 20170828
  Transmission Date: 20171127
  Serious: No
  Sender: FDA-Public Use
  Company Number: US-ROCHE-1141659

PATIENT
  Sex: Female

DRUGS (6)
  1. HUMATROPE [Concomitant]
     Active Substance: SOMATROPIN
     Route: 058
  2. DDAVP [Concomitant]
     Active Substance: DESMOPRESSIN ACETATE
     Dosage: 0.1 MG/TABLET (2 TABLETS IN THE MORNING AND TWO TABLETS IN THE EVENING)
     Route: 065
  3. NUTROPIN [Suspect]
     Active Substance: SOMATROPIN
     Indication: HYPOPITUITARISM
     Route: 058
     Dates: start: 1997
  4. LEVOTHYROXINE. [Concomitant]
     Active Substance: LEVOTHYROXINE
     Route: 065
  5. DEMULEN [Concomitant]
     Active Substance: ETHINYL ESTRADIOL\ETHYNODIOL
     Route: 065
  6. HYDROCORTISONE. [Concomitant]
     Active Substance: HYDROCORTISONE
     Route: 065

REACTIONS (2)
  - Injection site pain [Unknown]
  - Poor quality sleep [Unknown]
